FAERS Safety Report 5718679-0 (Version None)
Quarter: 2008Q2

REPORT INFORMATION
  Report Type: 
  Country: None (occurrence: None)
  Receive Date: 20080425
  Receipt Date: 20080414
  Transmission Date: 20081010
  Serious: Yes (Other)
  Sender: FDA-Public Use
  Company Number: US-PFIZER INC-2008032996

PATIENT
  Age: 40 Year
  Sex: Female

DRUGS (1)
  1. DILANTIN [Suspect]
     Indication: CONVULSION

REACTIONS (8)
  - BALANCE DISORDER [None]
  - CONFUSIONAL STATE [None]
  - DIZZINESS [None]
  - HEPATOCELLULAR INJURY [None]
  - HYPERSENSITIVITY [None]
  - INJURY [None]
  - STOMACH DISCOMFORT [None]
  - SYSTEMIC LUPUS ERYTHEMATOSUS [None]
